FAERS Safety Report 5291390-9 (Version None)
Quarter: 2007Q2

REPORT INFORMATION
  Report Type: 
  Country: None (occurrence: None)
  Receive Date: 20070402
  Receipt Date: 20070319
  Transmission Date: 20071010
  Serious: Yes (Hospitalization)
  Sender: FDA-Public Use
  Company Number: FSC__0067_2007

PATIENT
  Age: 83 Year
  Sex: Female

DRUGS (4)
  1. VASOLAN [Suspect]
     Dosage: DF PO
     Route: 048
  2. WARFARIN SODIUM [Suspect]
     Dosage: DF PO
     Route: 048
  3. DIGOXIN [Suspect]
     Dosage: DF
  4. BUCOLOME [Suspect]
     Dosage: DF PO
     Route: 048

REACTIONS (8)
  - CARDIOACTIVE DRUG LEVEL ABOVE THERAPEUTIC [None]
  - DRUG INTERACTION [None]
  - INTERNATIONAL NORMALISED RATIO INCREASED [None]
  - NAUSEA [None]
  - OVERDOSE [None]
  - RENAL IMPAIRMENT [None]
  - THERAPEUTIC AGENT TOXICITY [None]
  - VOMITING [None]
